FAERS Safety Report 6409329-9 (Version None)
Quarter: 2009Q4

REPORT INFORMATION
  Report Type: 
  Country: None (occurrence: None)
  Receive Date: 20091021
  Receipt Date: 20091020
  Transmission Date: 20100525
  Serious: Yes (Other)
  Sender: FDA-Public Use
  Company Number: DE-WYE-G04663209

PATIENT

DRUGS (1)
  1. TAZOBAC EF [Suspect]
     Dosage: UNKNOWN
     Route: 042
     Dates: start: 20090101

REACTIONS (3)
  - GASTROSTOMY [None]
  - HAEMORRHAGE [None]
  - THROMBOCYTOPENIA [None]
